FAERS Safety Report 24765102 (Version 1)
Quarter: 2024Q4

REPORT INFORMATION
  Report Type: Other
  Country: JP (occurrence: JP)
  Receive Date: 20241223
  Receipt Date: 20241223
  Transmission Date: 20250114
  Serious: Yes (Hospitalization)
  Sender: ALVOGEN
  Company Number: JP-ALVOGEN-2024095951

PATIENT
  Age: 18 Year
  Sex: Male

DRUGS (1)
  1. MINOCYCLINE [Suspect]
     Active Substance: MINOCYCLINE HYDROCHLORIDE
     Indication: Urethritis
     Dosage: 200 MG/DAY, SIX DAYS OF THE ANTIBIOTIC TREATMENT

REACTIONS (3)
  - Pancreatic cyst [Recovering/Resolving]
  - Pancreatitis acute [Recovered/Resolved]
  - Off label use [Unknown]
